FAERS Safety Report 25888215 (Version 1)
Quarter: 2025Q4

REPORT INFORMATION
  Report Type: Spontaneous
  Country: EU (occurrence: EU)
  Receive Date: 20251007
  Receipt Date: 20251007
  Transmission Date: 20260117
  Serious: Yes (Hospitalization, Other)
  Sender: SANDOZ
  Company Number: EU-SZ09-PHHY2014PL138837

PATIENT
  Age: 21 Year
  Sex: Female

DRUGS (11)
  1. MYCOPHENOLATE MOFETIL [Suspect]
     Active Substance: MYCOPHENOLATE MOFETIL
     Indication: Prophylaxis against transplant rejection
     Dosage: 500 MILLIGRAM, BID
     Route: 065
  2. MYCOPHENOLATE MOFETIL [Suspect]
     Active Substance: MYCOPHENOLATE MOFETIL
     Indication: Immunosuppression
  3. PREDNISONE [Suspect]
     Active Substance: PREDNISONE
     Indication: Prophylaxis against transplant rejection
     Dosage: 15 MG, QD
     Route: 065
  4. PREDNISONE [Suspect]
     Active Substance: PREDNISONE
     Indication: Immunosuppression
  5. TACROLIMUS [Suspect]
     Active Substance: TACROLIMUS
     Indication: Renal transplant
     Dosage: 11 MG, QD
     Route: 065
     Dates: start: 20120714
  6. TACROLIMUS [Suspect]
     Active Substance: TACROLIMUS
     Indication: Immunosuppression
  7. TACROLIMUS [Suspect]
     Active Substance: TACROLIMUS
     Indication: Prophylaxis against transplant rejection
  8. MYCOPHENOLATE MOFETIL [Concomitant]
     Active Substance: MYCOPHENOLATE MOFETIL
     Indication: Renal transplant
     Dosage: 500 MG, BID
     Route: 065
  9. MYCOPHENOLATE MOFETIL [Concomitant]
     Active Substance: MYCOPHENOLATE MOFETIL
     Indication: Immunosuppressant drug therapy
  10. PREDNISONE [Concomitant]
     Active Substance: PREDNISONE
     Indication: Renal transplant
     Dosage: 15 MG, QD
     Route: 065
  11. PREDNISONE [Concomitant]
     Active Substance: PREDNISONE
     Indication: Immunosuppressant drug therapy

REACTIONS (29)
  - Catatonia [Recovered/Resolved]
  - Social avoidant behaviour [Recovered/Resolved]
  - Stupor [Recovered/Resolved]
  - Mutism [Recovered/Resolved]
  - Posturing [Recovered/Resolved]
  - Muscle rigidity [Recovered/Resolved]
  - Hallucination, auditory [Recovered/Resolved]
  - Agitation [Recovered/Resolved]
  - Negativism [Recovered/Resolved]
  - Staring [Recovered/Resolved]
  - Unresponsive to stimuli [Recovered/Resolved]
  - Hypokinesia [Recovered/Resolved]
  - Hyperreflexia [Recovered/Resolved]
  - Aggression [Recovered/Resolved]
  - Lack of spontaneous speech [Recovered/Resolved]
  - Persecutory delusion [Recovered/Resolved]
  - Loose associations [Recovered/Resolved]
  - Neurotoxicity [Unknown]
  - Inappropriate affect [Recovered/Resolved]
  - Hypertonia [Recovered/Resolved]
  - Echolalia [Recovered/Resolved]
  - Distractibility [Recovered/Resolved]
  - Echopraxia [Recovered/Resolved]
  - Catatonia [Recovered/Resolved]
  - Leukocytosis [Unknown]
  - Disorientation [Recovered/Resolved]
  - Neutrophilia [Unknown]
  - Blood magnesium decreased [Unknown]
  - Antibody test positive [Unknown]
